FAERS Safety Report 24150547 (Version 3)
Quarter: 2024Q3

REPORT INFORMATION
  Report Type: Spontaneous
  Country: US (occurrence: US)
  Receive Date: 20240730
  Receipt Date: 20240917
  Transmission Date: 20241016
  Serious: Yes (Disabling, Other)
  Sender: CHIESI
  Company Number: US-CHIESI-2024CHF04553

PATIENT
  Age: 34 Year
  Sex: Female

DRUGS (1)
  1. ELFABRIO [Suspect]
     Active Substance: PEGUNIGALSIDASE ALFA-IWXJ
     Indication: Fabry^s disease
     Dosage: 60 MILLIGRAM, QOW
     Route: 042
     Dates: start: 20240408

REACTIONS (3)
  - Hallucination [Recovered/Resolved]
  - Aphasia [Recovered/Resolved]
  - Fatigue [Recovered/Resolved]

NARRATIVE: CASE EVENT DATE: 20240715
